FAERS Safety Report 23951313 (Version 3)
Quarter: 2024Q3

REPORT INFORMATION
  Report Type: Spontaneous
  Country: CA (occurrence: CA)
  Receive Date: 20240607
  Receipt Date: 20240726
  Transmission Date: 20241017
  Serious: Yes (Other)
  Sender: PFIZER
  Company Number: CA-PFIZER INC-202400187768

PATIENT
  Age: 56 Year
  Sex: Female

DRUGS (4)
  1. CIBINQO [Suspect]
     Active Substance: ABROCITINIB
     Indication: Dermatitis atopic
     Dosage: 100 MG, 1X/DAY
     Route: 048
     Dates: start: 20230721, end: 2024
  2. CIBINQO [Suspect]
     Active Substance: ABROCITINIB
     Dosage: 100 MG, 1X/DAY
     Route: 048
     Dates: end: 202403
  3. BETADERM [Concomitant]
     Active Substance: BETAMETHASONE VALERATE
     Dosage: 1 DF
  4. SPIRONOLACTONE [Concomitant]
     Active Substance: SPIRONOLACTONE

REACTIONS (5)
  - Cellulitis [Recovered/Resolved]
  - Vulval ulceration [Recovered/Resolved]
  - Aphthous ulcer [Recovered/Resolved]
  - Urinary tract infection [Recovered/Resolved]
  - Intentional dose omission [Unknown]

NARRATIVE: CASE EVENT DATE: 20230701
